FAERS Safety Report 20803258 (Version 1)
Quarter: 2022Q2

REPORT INFORMATION
  Report Type: Spontaneous
  Country: US (occurrence: US)
  Receive Date: 20220509
  Receipt Date: 20220509
  Transmission Date: 20220721
  Serious: No
  Sender: FDA-Public Use
  Company Number: US-PFIZER INC-202200661015

PATIENT
  Age: 62 Year
  Sex: Female

DRUGS (1)
  1. PAXLOVID [Suspect]
     Active Substance: NIRMATRELVIR\RITONAVIR
     Indication: COVID-19 treatment
     Dosage: UNK
     Dates: start: 20220421, end: 20220425

REACTIONS (6)
  - COVID-19 [Unknown]
  - Pyrexia [Unknown]
  - Respiratory tract congestion [Unknown]
  - Cough [Unknown]
  - Illness [Unknown]
  - Sneezing [Unknown]

NARRATIVE: CASE EVENT DATE: 20220401
